FAERS Safety Report 10387153 (Version 2)
Quarter: 2014Q3

REPORT INFORMATION
  Report Type: Spontaneous
  Country: BR (occurrence: BR)
  Receive Date: 20140815
  Receipt Date: 20140815
  Transmission Date: 20150326
  Serious: Yes (Death)
  Sender: FDA-Public Use
  Company Number: BR-PFIZER INC-2013360694

PATIENT
  Age: 59 Year
  Sex: Female
  Weight: 36 kg

DRUGS (3)
  1. NAPRONAX [Concomitant]
     Indication: PYREXIA
     Dosage: UNSPECIFIED DOSE, AS NEEDED
  2. SUTENT [Suspect]
     Active Substance: SUNITINIB MALATE
     Indication: RENAL CELL CARCINOMA
     Dosage: 50 MG (1 CAPSULE), CYCLIC (CYCLE 4X2), 1X/DAY
     Route: 048
     Dates: start: 20131204
  3. NORIPURUM [Concomitant]
     Active Substance: IRON POLYMALTOSE
     Indication: ANAEMIA
     Dosage: 100 MG (1 TABLET), 1X/DAY

REACTIONS (7)
  - Decubitus ulcer [Not Recovered/Not Resolved]
  - Oral pain [Not Recovered/Not Resolved]
  - Yellow skin [Not Recovered/Not Resolved]
  - Haemoptysis [Not Recovered/Not Resolved]
  - Death [Fatal]
  - Glossodynia [Not Recovered/Not Resolved]
  - Diarrhoea [Not Recovered/Not Resolved]

NARRATIVE: CASE EVENT DATE: 201312
